FAERS Safety Report 20200140 (Version 1)
Quarter: 2021Q4

REPORT INFORMATION
  Report Type: Spontaneous
  Country: US (occurrence: US)
  Receive Date: 20211217
  Receipt Date: 20211217
  Transmission Date: 20220304
  Serious: No
  Sender: FDA-Public Use
  Company Number: US-GW PHARMA-202112USGW06196

PATIENT

DRUGS (1)
  1. EPIDIOLEX [Suspect]
     Active Substance: CANNABIDIOL
     Indication: Epilepsy
     Dosage: 800 MILLIGRAM, BID
     Route: 048
     Dates: start: 20190212

REACTIONS (6)
  - Fall [Unknown]
  - Wound [Unknown]
  - Contusion [Unknown]
  - Seizure [Recovered/Resolved]
  - Seizure [Unknown]
  - Product use in unapproved indication [Unknown]

NARRATIVE: CASE EVENT DATE: 20210101
